FAERS Safety Report 9028279 (Version 1)
Quarter: 2013Q1

REPORT INFORMATION
  Report Type: Spontaneous
  Country: US (occurrence: US)
  Receive Date: 20130124
  Receipt Date: 20130124
  Transmission Date: 20140127
  Serious: No
  Sender: FDA-Public Use
  Company Number: US-PFIZER INC-2013024721

PATIENT
  Sex: Female

DRUGS (3)
  1. TOVIAZ [Suspect]
     Dosage: UNK
  2. WARFARIN [Concomitant]
     Dosage: UNK
  3. DILTIAZEM [Concomitant]
     Dosage: UNK

REACTIONS (2)
  - Bladder disorder [Unknown]
  - Dry mouth [Unknown]
